FAERS Safety Report 7170827-4 (Version None)
Quarter: 2010Q4

REPORT INFORMATION
  Report Type: 
  Country: None (occurrence: None)
  Receive Date: 20101217
  Receipt Date: 20101210
  Transmission Date: 20110411
  Serious: Yes (Other)
  Sender: FDA-Public Use
  Company Number: US-AMGEN-USASP2010008135

PATIENT

DRUGS (2)
  1. ENBREL [Suspect]
     Indication: RHEUMATOID ARTHRITIS
     Dates: start: 20101103
  2. ENBREL [Suspect]
     Dates: start: 20101101

REACTIONS (4)
  - DIZZINESS [None]
  - HYPERSENSITIVITY [None]
  - OSTEOPOROSIS [None]
  - UPPER RESPIRATORY TRACT CONGESTION [None]
